FAERS Safety Report 9084607 (Version 1)
Quarter: 2013Q1

REPORT INFORMATION
  Report Type: Report from Study
  Country: US (occurrence: US)
  Receive Date: 20130131
  Receipt Date: 20130131
  Transmission Date: 20140127
  Serious: No
  Sender: FDA-Public Use
  Company Number: US-ABBOTT-12P-163-0992406-00

PATIENT
  Age: 29 Year
  Sex: Female

DRUGS (7)
  1. HUMIRA [Suspect]
     Indication: CROHN^S DISEASE
     Dates: start: 20120711
  2. RISPERDAL [Concomitant]
     Indication: BIPOLAR DISORDER
     Dosage: AT BEDTIME
     Route: 048
  3. KLONOPIN [Concomitant]
     Indication: INSOMNIA
     Route: 048
  4. KLONOPIN [Concomitant]
     Indication: ANXIETY
  5. PROZAC [Concomitant]
     Indication: BIPOLAR DISORDER
     Dosage: IN THE MORNING
     Route: 048
  6. ASACOL [Concomitant]
     Indication: CROHN^S DISEASE
     Route: 048
  7. PRENATAL VITAMIN [Concomitant]
     Indication: SUPPLEMENTATION THERAPY
     Dosage: DAILY
     Route: 048

REACTIONS (3)
  - Bowel movement irregularity [Unknown]
  - Muscle spasms [Not Recovered/Not Resolved]
  - Drug effect decreased [Unknown]
